FAERS Safety Report 10958343 (Version 1)
Quarter: 2015Q1

REPORT INFORMATION
  Report Type: Spontaneous
  Country: KR (occurrence: KR)
  Receive Date: 20150326
  Receipt Date: 20150326
  Transmission Date: 20150721
  Serious: Yes (Death, Other)
  Sender: FDA-Public Use
  Company Number: PHHY2015KR033819

PATIENT
  Age: 56 Year
  Sex: Male

DRUGS (4)
  1. EVEROLIMUS [Suspect]
     Active Substance: EVEROLIMUS
     Indication: RENAL CELL CARCINOMA
     Route: 065
  2. EVEROLIMUS [Suspect]
     Active Substance: EVEROLIMUS
     Indication: METASTATIC RENAL CELL CARCINOMA
  3. SORAFENIB [Concomitant]
     Active Substance: SORAFENIB
     Indication: RENAL CELL CARCINOMA
     Dosage: 400 MG, BID FOR 7 MONTHS
     Route: 065
  4. SUNITINIB [Concomitant]
     Active Substance: SUNITINIB
     Indication: RENAL CELL CARCINOMA
     Dosage: 37.5 MG, FOR 7 MONTHS
     Route: 065

REACTIONS (17)
  - Rash pustular [Recovered/Resolved]
  - Spinal compression fracture [Unknown]
  - Metastases to spine [Fatal]
  - Skin swelling [Recovered/Resolved]
  - Metastatic renal cell carcinoma [Fatal]
  - Rash [Recovered/Resolved]
  - Interstitial granulomatous dermatitis [Recovered/Resolved]
  - Chills [Recovered/Resolved]
  - Rash vesicular [Recovered/Resolved]
  - Metastases to lung [Fatal]
  - Kaposi^s varicelliform eruption [Recovered/Resolved]
  - Drug eruption [Recovered/Resolved]
  - Malignant neoplasm progression [Fatal]
  - Metastases to bone [Fatal]
  - Blister [Recovered/Resolved]
  - Pyrexia [Recovered/Resolved]
  - Headache [Recovered/Resolved]
